FAERS Safety Report 17929264 (Version 2)
Quarter: 2020Q2

REPORT INFORMATION
  Report Type: Spontaneous
  Country: US (occurrence: US)
  Receive Date: 20200623
  Receipt Date: 20200630
  Transmission Date: 20200714
  Serious: Yes (Other)
  Sender: FDA-Public Use
  Company Number: US-PFIZER INC-2020240175

PATIENT
  Age: 36 Year
  Sex: Female
  Weight: 39.46 kg

DRUGS (2)
  1. DEPO-PROVERA [Suspect]
     Active Substance: MEDROXYPROGESTERONE ACETATE
     Indication: CONTRACEPTION
     Dosage: UNK
  2. DEPO-PROVERA [Suspect]
     Active Substance: MEDROXYPROGESTERONE ACETATE
     Indication: CONTRACEPTION
     Dosage: 150 ML (EVERY THREE MONTHS)
     Dates: start: 20200616

REACTIONS (5)
  - Abnormal faeces [Unknown]
  - Pain in extremity [Unknown]
  - Faeces discoloured [Unknown]
  - Infrequent bowel movements [Unknown]
  - Haematochezia [Unknown]

NARRATIVE: CASE EVENT DATE: 20200616
